FAERS Safety Report 20020134 (Version 1)
Quarter: 2021Q4

REPORT INFORMATION
  Report Type: Spontaneous
  Country: US (occurrence: US)
  Receive Date: 20211101
  Receipt Date: 20211101
  Transmission Date: 20220303
  Serious: No
  Sender: FDA-Public Use
  Company Number: US-AstraZeneca-2011SE49949

PATIENT
  Age: 49 Year
  Sex: Male

DRUGS (1)
  1. CAPRELSA [Suspect]
     Active Substance: VANDETANIB
     Indication: Thyroid cancer
     Dosage: 300 MG,QD
     Route: 048
     Dates: start: 20120103

REACTIONS (1)
  - Diarrhoea [Not Recovered/Not Resolved]
